FAERS Safety Report 6213705-7 (Version None)
Quarter: 2009Q2

REPORT INFORMATION
  Report Type: 
  Country: None (occurrence: None)
  Receive Date: 20090603
  Receipt Date: 20090525
  Transmission Date: 20091009
  Serious: Yes (Other)
  Sender: FDA-Public Use
  Company Number: PHHY2009DE20553

PATIENT
  Sex: Female

DRUGS (2)
  1. GLEEVEC [Suspect]
     Dosage: 400 MG/DAY
     Route: 048
     Dates: start: 20060615, end: 20090301
  2. GLEEVEC [Suspect]
     Dosage: 800 MG/DAY
     Route: 048
     Dates: start: 20090301

REACTIONS (1)
  - HAEMORRHAGIC DIATHESIS [None]
